FAERS Safety Report 8605005-2 (Version None)
Quarter: 2012Q3

REPORT INFORMATION
  Report Type: 
  Country: None (occurrence: None)
  Receive Date: 20120808
  Receipt Date: 20120808
  Transmission Date: 20120928
  Serious: No
  Sender: FDA-Public Use
  Company Number: None

PATIENT
  Sex: Male

DRUGS (3)
  1. PEGASYS [Suspect]
     Dosage: INJECT 180MCG (0.5ML) SUBCUTANEOUSLY EVERY WEEK **KEEP REFRIGERATED**
     Dates: start: 20120803
  2. RIBAVIRIN [Suspect]
  3. INCIVEK [Suspect]

REACTIONS (1)
  - RASH ERYTHEMATOUS [None]
